FAERS Safety Report 7035844-3 (Version None)
Quarter: 2010Q4

REPORT INFORMATION
  Report Type: 
  Country: None (occurrence: None)
  Receive Date: 20101008
  Receipt Date: 20100929
  Transmission Date: 20110411
  Serious: Yes (Hospitalization, Other)
  Sender: FDA-Public Use
  Company Number: US-AMGEN-QUU428883

PATIENT
  Sex: Female
  Weight: 102.5 kg

DRUGS (3)
  1. NPLATE [Suspect]
     Indication: IDIOPATHIC THROMBOCYTOPENIC PURPURA
     Dates: start: 20090714, end: 20100126
  2. CELLCEPT [Concomitant]
     Dates: start: 20080924, end: 20081201
  3. PREDNISONE [Concomitant]

REACTIONS (8)
  - ABDOMINAL ABSCESS [None]
  - DIVERTICULITIS [None]
  - INTESTINAL PERFORATION [None]
  - MESENTERIC VEIN THROMBOSIS [None]
  - MULTIMORBIDITY [None]
  - PLATELET COUNT ABNORMAL [None]
  - THERAPEUTIC RESPONSE DECREASED [None]
  - THROMBOCYTOPENIA [None]
